FAERS Safety Report 9280484 (Version 1)
Quarter: 2013Q2

REPORT INFORMATION
  Report Type: Spontaneous
  Country: US (occurrence: US)
  Receive Date: 20130509
  Receipt Date: 20130509
  Transmission Date: 20140414
  Serious: Yes (Hospitalization, Other)
  Sender: FDA-Public Use
  Company Number: US-BAYER-2013-055253

PATIENT
  Age: 23 Year
  Sex: Female

DRUGS (8)
  1. YAZ [Suspect]
  2. ARIXTRA [Concomitant]
  3. TOPAMAX [Concomitant]
  4. MAXALT [Concomitant]
  5. METAMUCIL [Concomitant]
  6. POTASSIUM [Concomitant]
  7. MULTIVITAMIN [Concomitant]
  8. NAPROSYN [Concomitant]

REACTIONS (3)
  - Pulmonary embolism [None]
  - Deep vein thrombosis [None]
  - Cholelithiasis [None]
